FAERS Safety Report 10581116 (Version 1)
Quarter: 2014Q4

REPORT INFORMATION
  Report Type: Spontaneous
  Country: KR (occurrence: None)
  Receive Date: 20141110
  Receipt Date: 20141110
  Transmission Date: 20150529
  Serious: Yes (Hospitalization)
  Sender: FDA-Public Use
  Company Number: IMP_08055_2014

PATIENT
  Age: 15 Year
  Sex: Male

DRUGS (1)
  1. DIVALPROEX SODIUM. [Suspect]
     Active Substance: DIVALPROEX SODIUM
     Indication: JUVENILE MYOCLONIC EPILEPSY

REACTIONS (6)
  - Pulmonary alveolar haemorrhage [None]
  - Haemoptysis [None]
  - Crepitations [None]
  - Haemoglobin decreased [None]
  - Dyspnoea [None]
  - Rash [None]
